FAERS Safety Report 24882118 (Version 1)
Quarter: 2025Q1

REPORT INFORMATION
  Report Type: Spontaneous
  Country: CH (occurrence: CH)
  Receive Date: 20250124
  Receipt Date: 20250124
  Transmission Date: 20250409
  Serious: Yes (Life-Threatening, Hospitalization)
  Sender: MACLEODS
  Company Number: CH-MLMSERVICE-20250109-PI317604-00256-1

PATIENT

DRUGS (4)
  1. PANTOPRAZOLE [Suspect]
     Active Substance: PANTOPRAZOLE
     Indication: Helicobacter gastritis
     Dosage: HIGH-DOSE
     Route: 065
  2. TETRACYCLINE [Concomitant]
     Active Substance: TETRACYCLINE
     Indication: Helicobacter gastritis
     Route: 065
  3. METRONIDAZOLE [Concomitant]
     Active Substance: METRONIDAZOLE
     Indication: Helicobacter gastritis
     Route: 065
  4. BISMUTH [Concomitant]
     Active Substance: BISMUTH SUBSALICYLATE
     Indication: Helicobacter gastritis
     Route: 065

REACTIONS (13)
  - Gastritis bacterial [Recovering/Resolving]
  - Abdominal compartment syndrome [Recovered/Resolved]
  - Toxic shock syndrome streptococcal [Recovering/Resolving]
  - Candida infection [Recovering/Resolving]
  - Septic shock [Recovering/Resolving]
  - Multiple organ dysfunction syndrome [Recovering/Resolving]
  - Anuria [Recovering/Resolving]
  - Pneumonia aspiration [Recovering/Resolving]
  - Escherichia infection [Recovering/Resolving]
  - Subcapsular hepatic haematoma [Recovered/Resolved]
  - Splenic abscess [Recovering/Resolving]
  - Intensive care unit acquired weakness [Recovering/Resolving]
  - Gastric stenosis [Recovering/Resolving]
